FAERS Safety Report 4563110-4 (Version None)
Quarter: 2005Q1

REPORT INFORMATION
  Report Type: 
  Country: None (occurrence: None)
  Receive Date: 20050125
  Receipt Date: 20050114
  Transmission Date: 20050727
  Serious: Yes (Other)
  Sender: FDA-Public Use
  Company Number: FR-2004-035776

PATIENT
  Age: 45 Year
  Sex: Female
  Weight: 65 kg

DRUGS (2)
  1. MIRENA [Suspect]
     Indication: MENORRHAGIA
     Dosage: 20 ?G/DAY, CONT, INTRA-UTERINE
     Route: 015
     Dates: start: 20001120
  2. LEVOTHYROXINE SODIUM [Concomitant]
     Indication: IUCD COMPLICATION

REACTIONS (1)
  - BREAST CANCER STAGE I [None]
